FAERS Safety Report 7569590-4 (Version None)
Quarter: 2011Q2

REPORT INFORMATION
  Report Type: 
  Country: None (occurrence: None)
  Receive Date: 20110621
  Receipt Date: 20110621
  Transmission Date: 20111010
  Serious: Yes (Other)
  Sender: FDA-Public Use
  Company Number: None

PATIENT
  Sex: Female

DRUGS (1)
  1. ADDERALL 30 [Suspect]
     Dosage: 30MG ONE QD
     Dates: start: 20110604, end: 20110608

REACTIONS (4)
  - DEPRESSION [None]
  - TREMOR [None]
  - ANXIETY [None]
  - CRYING [None]
